FAERS Safety Report 19623987 (Version 1)
Quarter: 2021Q3

REPORT INFORMATION
  Report Type: Spontaneous
  Country: US (occurrence: US)
  Receive Date: 20210728
  Receipt Date: 20210728
  Transmission Date: 20211014
  Serious: No
  Sender: FDA-Public Use
  Company Number: US-SHIRE-US201732541

PATIENT
  Age: 4 Year
  Sex: Male

DRUGS (1)
  1. ELAPRASE [Suspect]
     Active Substance: IDURSULFASE
     Indication: MUCOPOLYSACCHARIDOSIS II
     Dosage: UNK
     Route: 042
     Dates: start: 20161205

REACTIONS (4)
  - Inappropriate schedule of product administration [Recovered/Resolved]
  - Infusion site extravasation [Unknown]
  - Pyrexia [Recovered/Resolved]
  - Catheter site inflammation [Unknown]

NARRATIVE: CASE EVENT DATE: 20171120
